FAERS Safety Report 4681950-8 (Version None)
Quarter: 2005Q2

REPORT INFORMATION
  Report Type: 
  Country: None (occurrence: None)
  Receive Date: 20050602
  Receipt Date: 20050531
  Transmission Date: 20051028
  Serious: Yes (Hospitalization)
  Sender: FDA-Public Use
  Company Number: DEWYE705731MAY05

PATIENT
  Age: 41 Year
  Sex: Female

DRUGS (4)
  1. VENLAFAXINE HCL [Suspect]
     Dosage: MAXIMUM OF 7500 MG ORAL
     Route: 048
     Dates: start: 20050530, end: 20050530
  2. ATOSIL (ISOPROMETHAZINE HYDROCHLORIDE, , 0) [Suspect]
     Dosage: MAXIMUM OF 150 MG ORAL
     Route: 048
     Dates: start: 20050530, end: 20050530
  3. BENZODIAZEPINE (BENZODIAZEPINE, , 0) [Suspect]
     Dosage: ORAL
     Route: 048
     Dates: start: 20050530, end: 20050530
  4. ZYPREXA [Suspect]
     Dosage: MAXIMUM OF 1200 MG ORAL
     Route: 048
     Dates: start: 20050530, end: 20050530

REACTIONS (3)
  - COMA [None]
  - INTENTIONAL MISUSE [None]
  - OVERDOSE [None]
